FAERS Safety Report 5697287-4 (Version None)
Quarter: 2008Q2

REPORT INFORMATION
  Report Type: 
  Country: None (occurrence: None)
  Receive Date: 20080408
  Receipt Date: 20070815
  Transmission Date: 20081010
  Serious: No
  Sender: FDA-Public Use
  Company Number: US-BAYER-US-2007-030568

PATIENT
  Age: 36 Year
  Sex: Female
  Weight: 61 kg

DRUGS (5)
  1. YASMIN [Suspect]
     Indication: ORAL CONTRACEPTION
     Route: 048
     Dates: start: 20070101
  2. ZOLOFT [Concomitant]
  3. TRAZODONE HCL [Concomitant]
  4. LEVOTHYROXINE SODIUM [Concomitant]
  5. VITAMIN TAB [Concomitant]

REACTIONS (3)
  - ABDOMINAL PAIN LOWER [None]
  - INAPPROPRIATE SCHEDULE OF DRUG ADMINISTRATION [None]
  - MENSTRUATION DELAYED [None]
